FAERS Safety Report 11174944 (Version 2)
Quarter: 2015Q3

REPORT INFORMATION
  Report Type: Spontaneous
  Country: NL (occurrence: NL)
  Receive Date: 20150609
  Receipt Date: 20150729
  Transmission Date: 20151125
  Serious: Yes (Hospitalization, Other)
  Sender: FDA-Public Use
  Company Number: NL-ACTELION-A-CH2015-118850

PATIENT
  Age: 53 Year
  Sex: Female

DRUGS (1)
  1. VELETRI [Suspect]
     Active Substance: EPOPROSTENOL
     Indication: PULMONARY HYPERTENSION
     Dosage: 4500 MCG, UNK
     Route: 042
     Dates: start: 20140224

REACTIONS (3)
  - Embolism [Unknown]
  - Haemoptysis [Unknown]
  - Lung transplant [Unknown]

NARRATIVE: CASE EVENT DATE: 20150601
